FAERS Safety Report 12395637 (Version 1)
Quarter: 2016Q2

REPORT INFORMATION
  Report Type: Spontaneous
  Country: US (occurrence: US)
  Receive Date: 20160523
  Receipt Date: 20160523
  Transmission Date: 20160815
  Serious: Yes (Hospitalization, Other)
  Sender: FDA-Public Use
  Company Number: US-MDT-ADR-2015-02319

PATIENT
  Age: 14 Year
  Sex: Male
  Weight: 36 kg

DRUGS (1)
  1. LIORESAL [Suspect]
     Active Substance: BACLOFEN
     Route: 037

REACTIONS (3)
  - Skin erosion [Unknown]
  - Implant site infection [Unknown]
  - Pocket erosion [Unknown]

NARRATIVE: CASE EVENT DATE: 20151201
